FAERS Safety Report 16156010 (Version 5)
Quarter: 2020Q4

REPORT INFORMATION
  Report Type: Report from Study
  Country: US (occurrence: US)
  Receive Date: 20190404
  Receipt Date: 20201205
  Transmission Date: 20210113
  Serious: Yes (Other)
  Sender: FDA-Public Use
  Company Number: PHEH2019US014426

PATIENT
  Sex: Female

DRUGS (4)
  1. ENTRESTO [Suspect]
     Active Substance: SACUBITRIL\VALSARTAN
     Indication: PRODUCT USED FOR UNKNOWN INDICATION
     Route: 048
  2. ENTRESTO [Suspect]
     Active Substance: SACUBITRIL\VALSARTAN
     Dosage: 1 DF
     Route: 065
  3. ENTRESTO [Suspect]
     Active Substance: SACUBITRIL\VALSARTAN
     Dosage: 2 DF
     Route: 065
  4. COREG [Concomitant]
     Active Substance: CARVEDILOL
     Indication: PRODUCT USED FOR UNKNOWN INDICATION
     Route: 065

REACTIONS (12)
  - Dyspnoea [Unknown]
  - Productive cough [Unknown]
  - Sinus disorder [Unknown]
  - Back pain [Unknown]
  - Hyperhidrosis [Unknown]
  - Cough [Unknown]
  - Ejection fraction decreased [Unknown]
  - Feeling abnormal [Unknown]
  - Abdominal distension [Unknown]
  - Bladder disorder [Unknown]
  - Pericardial effusion [Unknown]
  - Wheezing [Unknown]
